FAERS Safety Report 7606375-4 (Version None)
Quarter: 2011Q3

REPORT INFORMATION
  Report Type: 
  Country: None (occurrence: None)
  Receive Date: 20110712
  Receipt Date: 20110712
  Transmission Date: 20111222
  Serious: Yes (Hospitalization)
  Sender: FDA-Public Use
  Company Number: None

PATIENT
  Age: 78 Year
  Sex: Male
  Weight: 70.5 kg

DRUGS (1)
  1. INSULIN (ASPART) [Suspect]
     Dosage: UNITS OTHER SQ
     Route: 058
     Dates: start: 20100604, end: 20100605

REACTIONS (1)
  - HYPOGLYCAEMIA [None]
